FAERS Safety Report 4603398-4 (Version None)
Quarter: 2005Q2

REPORT INFORMATION
  Report Type: 
  Country: None (occurrence: None)
  Receive Date: 20050223
  Receipt Date: 20050120
  Transmission Date: 20051028
  Serious: No
  Sender: FDA-Public Use
  Company Number: 211931

PATIENT
  Age: 38 Year
  Sex: Male

DRUGS (1)
  1. RAPTIVA [Suspect]

REACTIONS (2)
  - HYPOTENSION [None]
  - SYNCOPE [None]
